FAERS Safety Report 4868666-X (Version None)
Quarter: 2005Q4

REPORT INFORMATION
  Report Type: 
  Country: None (occurrence: None)
  Receive Date: 20051223
  Receipt Date: 20051213
  Transmission Date: 20060501
  Serious: Yes (Other)
  Sender: FDA-Public Use
  Company Number: 2005JP002353

PATIENT
  Age: 47 Year
  Sex: Female

DRUGS (6)
  1. PROGRAF [Suspect]
     Indication: RENAL TRANSPLANT
     Dates: start: 20040101
  2. MYCOPHENOLATE MOFETIL (MYCOPHENOLATE  MOFETIL) [Suspect]
     Dates: start: 20040101, end: 20050101
  3. RITUXIMAB (RITUXIMAB0 [Suspect]
     Indication: KIDNEY TRANSPLANT REJECTION
     Dosage: 150 MG/M2
     Dates: start: 20040911, end: 20040911
  4. RITUXIMAB (RITUXIMAB0 [Suspect]
     Indication: KIDNEY TRANSPLANT REJECTION
     Dosage: 150 MG/M2
     Dates: start: 20040914, end: 20040914
  5. PREDNISOLONE [Concomitant]
  6. BASILIXIMAB(BASILIXIMAB) [Concomitant]

REACTIONS (9)
  - AGRANULOCYTOSIS [None]
  - CYTOMEGALOVIRUS INFECTION [None]
  - GENERALISED OEDEMA [None]
  - HYPOGAMMAGLOBULINAEMIA [None]
  - KIDNEY TRANSPLANT REJECTION [None]
  - MYELOID MATURATION ARREST [None]
  - PYREXIA [None]
  - URINE OUTPUT DECREASED [None]
  - WEIGHT INCREASED [None]
